FAERS Safety Report 10056911 (Version 1)
Quarter: 2014Q2

REPORT INFORMATION
  Report Type: Report from Study
  Country: CA (occurrence: CA)
  Receive Date: 20140403
  Receipt Date: 20140403
  Transmission Date: 20141212
  Serious: Yes (Other)
  Sender: FDA-Public Use
  Company Number: CA-JNJFOC-20140318305

PATIENT
  Age: 28 Year
  Sex: Male
  Weight: 47.27 kg

DRUGS (3)
  1. REMICADE [Suspect]
     Indication: COLITIS ULCERATIVE
     Dosage: X 52 WEEKS
     Route: 042
     Dates: start: 20140327
  2. REMICADE [Suspect]
     Indication: COLITIS ULCERATIVE
     Dosage: X 52 WEEKS
     Route: 042
     Dates: start: 201208
  3. BENADRYL [Concomitant]
     Indication: PREMEDICATION
     Route: 042

REACTIONS (7)
  - Feeling hot [Recovering/Resolving]
  - Flushing [Recovering/Resolving]
  - Restlessness [Recovering/Resolving]
  - Dizziness [Recovering/Resolving]
  - Hyperhidrosis [Recovering/Resolving]
  - Nausea [Recovering/Resolving]
  - Infusion related reaction [Recovering/Resolving]
